FAERS Safety Report 14346069 (Version 3)
Quarter: 2018Q1

REPORT INFORMATION
  Report Type: Report from Study
  Country: MX (occurrence: MX)
  Receive Date: 20180103
  Receipt Date: 20180119
  Transmission Date: 20180509
  Serious: Yes (Other)
  Sender: FDA-Public Use
  Company Number: MX-UCBSA-2018000024

PATIENT
  Age: 56 Year
  Sex: Female
  Weight: 71 kg

DRUGS (10)
  1. BRIVARACETAM [Suspect]
     Active Substance: BRIVARACETAM
     Dosage: 100 MG, 2X/DAY (BID)
     Route: 048
     Dates: start: 20171204
  2. BRIVARACETAM [Suspect]
     Active Substance: BRIVARACETAM
     Dosage: 50 MG, ONCE DAILY (QD)
     Route: 048
     Dates: start: 2017, end: 2017
  3. BRIVARACETAM [Suspect]
     Active Substance: BRIVARACETAM
     Dosage: 50 MG, 2X/DAY (BID)
     Route: 048
     Dates: start: 2017, end: 2017
  4. METFORMIN [Concomitant]
     Active Substance: METFORMIN HYDROCHLORIDE
     Indication: DIABETES MELLITUS
     Dosage: 850 MG, 2X/DAY (BID)
  5. EVOREL [Concomitant]
     Indication: MENOPAUSE
  6. BRIVARACETAM [Suspect]
     Active Substance: BRIVARACETAM
     Dosage: 0.5 DF, 2X/DAY (BID) (? OF A TABLET/12 HRS )
     Route: 048
     Dates: start: 2017, end: 2017
  7. BRIVARACETAM [Suspect]
     Active Substance: BRIVARACETAM
     Indication: PARTIAL SEIZURES
     Dosage: 0.5 DF, ONCE DAILY (QD) (1/2 OF A TABLET/24HRS AT DINNER)
     Route: 048
     Dates: start: 2017, end: 2017
  8. ISOPRINOSINE [Concomitant]
     Active Substance: INOSINE PRANOBEX
     Indication: IMMUNODEFICIENCY
     Dosage: 1 DF, 3X/DAY (TID)
  9. INSULIN [Concomitant]
     Active Substance: INSULIN NOS
     Indication: DIABETES MELLITUS
  10. EUTIROX [Concomitant]
     Active Substance: LEVOTHYROXINE SODIUM
     Indication: HYPOTHYROIDISM
     Dosage: 112MG DAILY

REACTIONS (9)
  - Seizure [Recovered/Resolved]
  - Facial paralysis [Not Recovered/Not Resolved]
  - Malaise [Not Recovered/Not Resolved]
  - Immunodeficiency [Not Recovered/Not Resolved]
  - Off label use [Unknown]
  - Cough [Not Recovered/Not Resolved]
  - Nervousness [Recovered/Resolved]
  - Restlessness [Recovered/Resolved]
  - Tongue discomfort [Not Recovered/Not Resolved]

NARRATIVE: CASE EVENT DATE: 2017
